FAERS Safety Report 17432928 (Version 2)
Quarter: 2020Q2

REPORT INFORMATION
  Report Type: Spontaneous
  Country: FI (occurrence: FI)
  Receive Date: 20200219
  Receipt Date: 20200402
  Transmission Date: 20200713
  Serious: Yes (Other)
  Sender: FDA-Public Use
  Company Number: FI-ROCHE-2548678

PATIENT
  Age: 49 Year
  Sex: Male

DRUGS (2)
  1. XYZAL [Concomitant]
     Active Substance: LEVOCETIRIZINE DIHYDROCHLORIDE
     Indication: PRODUCT USED FOR UNKNOWN INDICATION
     Dosage: 1-4 PIECES, UNK
     Route: 065
  2. XOLAIR [Suspect]
     Active Substance: OMALIZUMAB
     Indication: URTICARIA
     Dosage: 300 MG, AT INTERVALS OF APPROXIMATELY 4-6 WEEKS
     Route: 065
     Dates: start: 20170524, end: 202001

REACTIONS (5)
  - Depressed level of consciousness [Unknown]
  - Chest discomfort [Unknown]
  - Weight decreased [Unknown]
  - Dyspnoea [Unknown]
  - Dizziness [Recovering/Resolving]

NARRATIVE: CASE EVENT DATE: 2019
